FAERS Safety Report 7878799-1 (Version None)
Quarter: 2011Q4

REPORT INFORMATION
  Report Type: 
  Country: None (occurrence: None)
  Receive Date: 20111028
  Receipt Date: 20111014
  Transmission Date: 20120403
  Serious: Yes (Hospitalization)
  Sender: FDA-Public Use
  Company Number: TPA20110A4956

PATIENT
  Age: 72 Year
  Sex: Male

DRUGS (11)
  1. BETAMETHASONE [Concomitant]
  2. METOLATE (METHOTREXATE) [Concomitant]
  3. ARCRANE (SODIUM ALGINATE) [Concomitant]
  4. DORAL [Suspect]
     Dates: end: 20110804
  5. ETISEDAN (ETIZOLAM) [Concomitant]
  6. FEBURIC (FEBUXOSTAT) [Suspect]
     Indication: GOUT
     Dosage: 10 MG (10 MG,1 IN 1 D) PER ORAL ; 10 MG (10 MG,1 IN 1 D) PER ORAL
     Route: 048
     Dates: start: 20110701, end: 20110704
  7. FEBURIC (FEBUXOSTAT) [Suspect]
     Indication: GOUT
     Dosage: 10 MG (10 MG,1 IN 1 D) PER ORAL ; 10 MG (10 MG,1 IN 1 D) PER ORAL
     Route: 048
     Dates: start: 20110802, end: 20110804
  8. TRIAZOLAM [Suspect]
     Dosage: PER ORAL
     Route: 048
     Dates: end: 20110804
  9. FOLIC ACID [Concomitant]
  10. ZOLPIDEM TARTRATE [Suspect]
  11. ALLOPURINOL [Suspect]
     Dosage: 100 MG (100 MG) ORAL
     Route: 048
     Dates: start: 20110701, end: 20110804

REACTIONS (4)
  - RHABDOMYOLYSIS [None]
  - DECREASED APPETITE [None]
  - STEVENS-JOHNSON SYNDROME [None]
  - INTERSTITIAL LUNG DISEASE [None]
